FAERS Safety Report 14896841 (Version 1)
Quarter: 2018Q2

REPORT INFORMATION
  Report Type: Other
  Country: GB (occurrence: GB)
  Receive Date: 20180515
  Receipt Date: 20180515
  Transmission Date: 20180711
  Serious: Yes (Congenital Anomaly, Other)
  Sender: FDA-Public Use
  Company Number: GB-DIMETHAID UK LIMITED-DIM-001633-2018

PATIENT
  Sex: Female
  Weight: 1.83 kg

DRUGS (4)
  1. LISINOPRIL. [Suspect]
     Active Substance: LISINOPRIL
     Indication: HYPERTENSION
     Dosage: UNK
     Route: 064
  2. METHOTREXATE. [Suspect]
     Active Substance: METHOTREXATE
     Indication: JUVENILE IDIOPATHIC ARTHRITIS
     Dosage: 15 MG, TWO OCCASIONS DURING EARLY PREGNANCY
     Route: 064
  3. DICLOFENAC SODIUM. [Suspect]
     Active Substance: DICLOFENAC SODIUM
     Indication: ARTHRITIS
     Dosage: UNK
     Route: 064
  4. PREDNISOLONE. [Suspect]
     Active Substance: PREDNISOLONE
     Indication: ARTHRITIS
     Dosage: UNK
     Route: 064

REACTIONS (19)
  - Skull malformation [Unknown]
  - Rib deformity [Unknown]
  - Fibula agenesis [Unknown]
  - Congenital bowing of long bones [Unknown]
  - Dysmorphism [Unknown]
  - Spine malformation [Unknown]
  - Foetal methotrexate syndrome [Unknown]
  - Limb deformity [Unknown]
  - Congenital hand malformation [Unknown]
  - Talipes [Unknown]
  - Craniosynostosis [Unknown]
  - Limb malformation [Unknown]
  - Foetal exposure during pregnancy [Recovered/Resolved]
  - Adactyly [Unknown]
  - Synostosis [Unknown]
  - Foetal growth restriction [Unknown]
  - Hand deformity [Unknown]
  - Congenital limb hyperextension [Unknown]
  - Knee deformity [Unknown]
